FAERS Safety Report 5765459-6 (Version None)
Quarter: 2008Q2

REPORT INFORMATION
  Report Type: 
  Country: None (occurrence: None)
  Receive Date: 20080611
  Receipt Date: 20080605
  Transmission Date: 20081010
  Serious: Yes (Other)
  Sender: FDA-Public Use
  Company Number: A0731481A

PATIENT
  Age: 25 Year
  Sex: Male

DRUGS (6)
  1. PAXIL [Suspect]
     Indication: DEPRESSION
     Dosage: 40MG SINGLE DOSE
     Route: 048
     Dates: start: 20060101, end: 20060101
  2. PAXIL [Suspect]
     Dosage: 75MG PER DAY
     Route: 048
     Dates: start: 20060601
  3. ENZYTE [Suspect]
  4. NITROUS OXIDE [Suspect]
  5. KLONOPIN [Concomitant]
  6. LORAZEPAM [Concomitant]

REACTIONS (9)
  - AGGRESSION [None]
  - CHILLS [None]
  - DIARRHOEA [None]
  - HEADACHE [None]
  - HYPERHIDROSIS [None]
  - NAUSEA [None]
  - SWELLING [None]
  - TREMOR [None]
  - VOMITING [None]
